FAERS Safety Report 26075015 (Version 2)
Quarter: 2025Q4

REPORT INFORMATION
  Report Type: Spontaneous
  Country: EU (occurrence: EU)
  Receive Date: 20251121
  Receipt Date: 20251212
  Transmission Date: 20260117
  Serious: Yes (Life-Threatening, Hospitalization, Other)
  Sender: TEVA
  Company Number: None

PATIENT
  Age: 18 Year
  Sex: Female
  Weight: 50 kg

DRUGS (11)
  1. AMOXICILLIN\CLAVULANIC ACID [Interacting]
     Active Substance: AMOXICILLIN\CLAVULANIC ACID
     Indication: Vaginal infection
     Dosage: AMOXICILLIN/CLAVULANIC ACID 625 MG 3 X 1
     Route: 065
     Dates: start: 20250621, end: 20250628
  2. AMOXICILLIN\CLAVULANATE POTASSIUM [Interacting]
     Active Substance: AMOXICILLIN\CLAVULANATE POTASSIUM
     Indication: Ear, nose and throat infection
     Dosage: GRANULES FOR PREPARING AN ORAL SUSPENSION
     Route: 048
     Dates: start: 20250811, end: 20250813
  3. AMOXICILLIN\CLAVULANATE POTASSIUM [Interacting]
     Active Substance: AMOXICILLIN\CLAVULANATE POTASSIUM
     Indication: Ear, nose and throat infection
     Dosage: GRANULES FOR PREPARING AN ORAL SUSPENSION
     Route: 048
     Dates: start: 20250926, end: 20250930
  4. AMOXICILLIN\CLAVULANATE POTASSIUM [Interacting]
     Active Substance: AMOXICILLIN\CLAVULANATE POTASSIUM
     Indication: Ear, nose and throat infection
     Dosage: GRANULES FOR PREPARING AN ORAL SUSPENSION
     Route: 048
     Dates: start: 20250707, end: 20250714
  5. IBUPROFEN [Interacting]
     Active Substance: IBUPROFEN
     Indication: Product used for unknown indication
     Dosage: IN RECENT EPISODES OF ANTIBIOTIC TREATMENT, NUROFEN WAS USED MORE FREQUENTLY AND DAILY, IN DOSES ...
     Route: 048
  6. IBUPROFEN [Interacting]
     Active Substance: IBUPROFEN
     Indication: Product used for unknown indication
     Dosage: TIME INTERVAL: AS NECESSARY: ACCORDING TO THE PATIENT, SHE BEGAN TAKING NUROFEN ON AN INDIVIDUAL ...
     Route: 048
     Dates: start: 2023
  7. IBUPROFEN [Interacting]
     Active Substance: IBUPROFEN
     Indication: Product used for unknown indication
     Dosage: ON SOME DAYS 12 TABLETS/DAY = 2.4 G/DAY: (600MG (2-3 HRS PAUSED) 600MG (2-3 HRS PAUSED) 600MG (2-...
     Route: 048
  8. HERBALS\WITHANIA SOMNIFERA ROOT [Interacting]
     Active Substance: HERBALS\WITHANIA SOMNIFERA ROOT
     Indication: Product used for unknown indication
     Dosage: 0 - 0 - 3G, O/ARG/BO/20/30624
     Route: 048
     Dates: start: 20250812, end: 20250815
  9. HERBALS\WITHANIA SOMNIFERA ROOT [Interacting]
     Active Substance: HERBALS\WITHANIA SOMNIFERA ROOT
     Indication: Product used for unknown indication
     Dosage: 0 - 0 - 1.5G, ORGANIC ASHWAGANDHA POWDER (RAIBU ORGANIC), O/ARG/BO/20/30624
     Route: 048
     Dates: start: 20250728, end: 20250811
  10. DESOGESTREL [Concomitant]
     Active Substance: DESOGESTREL
     Indication: Product used for unknown indication
     Dosage: MONIQ GYNIAL MONO
     Route: 048
     Dates: start: 20230615, end: 20250615
  11. Novalgin [Concomitant]
     Indication: Product used for unknown indication
     Dosage: TIME INTERVAL: AS NECESSARY: OCCASIONALLY NOVALGIN DROPS (4 X 20 DROPS)
     Route: 048

REACTIONS (7)
  - Acute hepatic failure [Recovered/Resolved]
  - Hepatotoxicity [Recovered/Resolved]
  - Pancreatic enzymes increased [Unknown]
  - Hepatic necrosis [Recovering/Resolving]
  - Hypokalaemia [Unknown]
  - Intentional overdose [Recovered/Resolved]
  - Coagulation test abnormal [Recovering/Resolving]

NARRATIVE: CASE EVENT DATE: 20250602
